FAERS Safety Report 5239186-8 (Version None)
Quarter: 2007Q1

REPORT INFORMATION
  Report Type: 
  Country: None (occurrence: None)
  Receive Date: 20061208
  Receipt Date: 20050909
  Transmission Date: 20070707
  Serious: Yes (Other)
  Sender: FDA-Public Use
  Company Number: 2005UW13332

PATIENT
  Age: 62 Year
  Sex: Female
  Weight: 101 kg

DRUGS (9)
  1. CRESTOR [Suspect]
     Indication: BLOOD CHOLESTEROL INCREASED
     Dosage: 10 MG QD PO
     Route: 048
  2. NEXIUM [Concomitant]
  3. DITROPAN [Concomitant]
  4. METOPROLOL SUCCINATE [Concomitant]
  5. VICODIN [Concomitant]
  6. LISINOPRIL [Concomitant]
  7. MULTI-VITAMINS [Concomitant]
  8. VITAMIN E [Concomitant]
  9. COENZYME Q10 [Concomitant]

REACTIONS (3)
  - FEELING HOT AND COLD [None]
  - LIMB DISCOMFORT [None]
  - MYALGIA [None]
